FAERS Safety Report 15320389 (Version 2)
Quarter: 2019Q1

REPORT INFORMATION
  Report Type: Spontaneous
  Country: CN (occurrence: CN)
  Receive Date: 20180827
  Receipt Date: 20190310
  Transmission Date: 20190417
  Serious: Yes (Death)
  Sender: FDA-Public Use
  Company Number: CN-SUN PHARMACEUTICAL INDUSTRIES LTD-2018R1-182538

PATIENT
  Age: 35 Year
  Sex: Male

DRUGS (14)
  1. EPIRUBICIN [Suspect]
     Active Substance: EPIRUBICIN
     Indication: METASTASES TO LUNG
  2. DOCETAXEL. [Suspect]
     Active Substance: DOCETAXEL
     Indication: ANGIOSARCOMA
  3. GEMCITABINE [Suspect]
     Active Substance: GEMCITABINE\GEMCITABINE HYDROCHLORIDE
     Indication: METASTASES TO LUNG
  4. EPIRUBICIN [Suspect]
     Active Substance: EPIRUBICIN
     Indication: ANGIOSARCOMA
  5. DOCETAXEL. [Suspect]
     Active Substance: DOCETAXEL
     Indication: EPITHELIOID SARCOMA
     Dosage: 75 MG/M2
     Route: 065
  6. GEMCITABINE [Suspect]
     Active Substance: GEMCITABINE\GEMCITABINE HYDROCHLORIDE
     Indication: ANGIOSARCOMA
  7. DOCETAXEL. [Suspect]
     Active Substance: DOCETAXEL
     Indication: CHEMOTHERAPY
  8. IFOSFAMIDE. [Suspect]
     Active Substance: IFOSFAMIDE
     Indication: ANGIOSARCOMA
  9. GEMCITABINE [Suspect]
     Active Substance: GEMCITABINE\GEMCITABINE HYDROCHLORIDE
     Indication: EPITHELIOID SARCOMA
     Dosage: 900 MG/M2
     Route: 065
  10. GEMCITABINE [Suspect]
     Active Substance: GEMCITABINE\GEMCITABINE HYDROCHLORIDE
     Indication: CHEMOTHERAPY
  11. DOCETAXEL. [Suspect]
     Active Substance: DOCETAXEL
     Indication: METASTASES TO LUNG
  12. IFOSFAMIDE. [Suspect]
     Active Substance: IFOSFAMIDE
     Indication: EPITHELIOID SARCOMA
     Dosage: 1 CYCLE(1500MG/M2)
     Route: 065
  13. EPIRUBICIN [Suspect]
     Active Substance: EPIRUBICIN
     Indication: EPITHELIOID SARCOMA
     Dosage: 30 MG/M2
     Route: 065
  14. IFOSFAMIDE. [Suspect]
     Active Substance: IFOSFAMIDE
     Indication: METASTASES TO LUNG

REACTIONS (6)
  - Drug ineffective [Fatal]
  - Leukopenia [Fatal]
  - Thrombocytopenia [Fatal]
  - Nausea [Fatal]
  - Disease progression [Fatal]
  - Pleural effusion [Fatal]
